FAERS Safety Report 7715721-2 (Version None)
Quarter: 2011Q3

REPORT INFORMATION
  Report Type: 
  Country: None (occurrence: None)
  Receive Date: 20110829
  Receipt Date: 20110822
  Transmission Date: 20111222
  Serious: Yes (Other)
  Sender: FDA-Public Use
  Company Number: FR-PFIZER INC-2011197732

PATIENT
  Age: 65 Year
  Sex: Male

DRUGS (7)
  1. ISENTRESS [Suspect]
     Dosage: 400 MG, 1X/DAY
     Route: 048
     Dates: start: 20110615, end: 20110617
  2. PREVISCAN [Concomitant]
  3. REYATAZ [Concomitant]
     Indication: HIV INFECTION
     Dosage: 80 MG, UNK
  4. PANTOPRAZOLE [Suspect]
     Dosage: 80 MG, 1X/DAY
     Route: 042
     Dates: start: 20110602
  5. EPIVIR [Concomitant]
     Indication: HIV INFECTION
     Dosage: 100 MG, UNK
     Dates: start: 20110615
  6. LERCANIDIPINE [Concomitant]
  7. VALSARTAN  AND HYDROCHLOROTHIAZIDE [Concomitant]

REACTIONS (1)
  - BRADYCARDIA [None]
